FAERS Safety Report 9619562 (Version 1)
Quarter: 2013Q4

REPORT INFORMATION
  Report Type: Spontaneous
  Country: US (occurrence: US)
  Receive Date: 20131014
  Receipt Date: 20131014
  Transmission Date: 20140711
  Serious: Yes (Other)
  Sender: FDA-Public Use
  Company Number: US-PFIZER INC-2013289455

PATIENT
  Sex: Male

DRUGS (1)
  1. PREPARATION H HEMORRHOIDAL SUPPOSITORIES [Suspect]
     Dosage: UNK

REACTIONS (3)
  - Recurrent cancer [Unknown]
  - Off label use [Unknown]
  - Product quality issue [Unknown]
